FAERS Safety Report 6022121-2 (Version None)
Quarter: 2008Q4

REPORT INFORMATION
  Report Type: 
  Country: None (occurrence: None)
  Receive Date: 20081229
  Receipt Date: 20081222
  Transmission Date: 20090506
  Serious: Yes (Hospitalization)
  Sender: FDA-Public Use
  Company Number: US-ASTRAZENECA-2008UW28609

PATIENT
  Sex: Female

DRUGS (1)
  1. NEXIUM [Suspect]
     Dosage: PRN
     Route: 048
     Dates: start: 20080601

REACTIONS (2)
  - BLOOD PRESSURE INCREASED [None]
  - DIVERTICULITIS INTESTINAL HAEMORRHAGIC [None]
